FAERS Safety Report 6871543-6 (Version None)
Quarter: 2010Q3

REPORT INFORMATION
  Report Type: 
  Country: None (occurrence: None)
  Receive Date: 20100723
  Receipt Date: 20100715
  Transmission Date: 20110219
  Serious: Yes (Other)
  Sender: FDA-Public Use
  Company Number: PHHO2009KW13984

PATIENT
  Sex: Male
  Weight: 101 kg

DRUGS (4)
  1. ZOLEDRONATE T29581+SOLINJ+BM [Suspect]
     Indication: PROSTATE CANCER
     Dosage: 4 MG, EVERY 4 WEEKS
     Route: 042
     Dates: start: 20070926, end: 20090710
  2. ZOLEDRONATE T29581+SOLINJ+BM [Suspect]
     Dosage: 4 MG, EVERY 4 WEEKS
     Route: 048
     Dates: end: 20090901
  3. VITAMIN D [Concomitant]
  4. CALCIUM [Concomitant]

REACTIONS (4)
  - BONE DISORDER [None]
  - GINGIVAL PAIN [None]
  - PAIN IN JAW [None]
  - TOOTH INFECTION [None]
